FAERS Safety Report 12200620 (Version 1)
Quarter: 2016Q1

REPORT INFORMATION
  Report Type: Spontaneous
  Country: US (occurrence: US)
  Receive Date: 20160322
  Receipt Date: 20160322
  Transmission Date: 20160526
  Serious: No
  Sender: FDA-Public Use
  Company Number: US-SEPTODONT-201503207

PATIENT
  Sex: Female

DRUGS (2)
  1. XYLOCAINE 2% WITH EPINEPHRINE 1:100,000 INJECTION [Suspect]
     Active Substance: EPINEPHRINE BITARTRATE\LIDOCAINE HYDROCHLORIDE
     Indication: LOCAL ANAESTHESIA
     Dosage: TOOK SIX CARPULES TO GET NUMB. UNABLE TO DETERMINE IF SEPTOCAINE OR XYLOCAINE WAS ADMINISTERED.
     Route: 004
  2. SEPTOCAINE AND EPINEPHRINE [Suspect]
     Active Substance: ARTICAINE HYDROCHLORIDE\EPINEPHRINE BITARTRATE
     Indication: LOCAL ANAESTHESIA
     Dosage: TOOK SIX CARPULES TO GET NUMB. UNABLE TO DETERMINE IF SEPTOCAINE OR XYLOCAINE WAS ADMINISTERED.
     Route: 004

REACTIONS (1)
  - Drug ineffective [Unknown]

NARRATIVE: CASE EVENT DATE: 20150420
